FAERS Safety Report 7539107-9 (Version None)
Quarter: 2011Q2

REPORT INFORMATION
  Report Type: 
  Country: None (occurrence: None)
  Receive Date: 20110610
  Receipt Date: 20010619
  Transmission Date: 20111010
  Serious: Yes (Death)
  Sender: FDA-Public Use
  Company Number: PHBS2001CA00922

PATIENT
  Sex: Male

DRUGS (3)
  1. STELAZINE [Concomitant]
     Dosage: UNK, UNK
  2. LORAZEPAM [Concomitant]
     Dosage: .5 MG, BID
  3. CLOZARIL [Suspect]
     Indication: SCHIZOPHRENIA
     Dosage: UNKNOWN
     Route: 048
     Dates: start: 19940828

REACTIONS (6)
  - DRUG LEVEL INCREASED [None]
  - HALLUCINATION, AUDITORY [None]
  - WHEEZING [None]
  - SEDATION [None]
  - LOWER RESPIRATORY TRACT INFECTION [None]
  - MYOCARDIAL INFARCTION [None]
